FAERS Safety Report 7152206-9 (Version None)
Quarter: 2010Q4

REPORT INFORMATION
  Report Type: 
  Country: None (occurrence: None)
  Receive Date: 20101209
  Receipt Date: 20101209
  Transmission Date: 20110411
  Serious: Yes (Other)
  Sender: FDA-Public Use
  Company Number: None

PATIENT
  Age: 34 Year
  Sex: Female
  Weight: 72.5755 kg

DRUGS (1)
  1. DOXYCYCLINE HYCLATE [Suspect]
     Indication: DENTAL CARE
     Dosage: 1 TABLET 2X A DAY PO
     Route: 048
     Dates: start: 20101124, end: 20101207

REACTIONS (2)
  - HAEMORRHAGE [None]
  - NAUSEA [None]
